FAERS Safety Report 19936726 (Version 1)
Quarter: 2021Q4

REPORT INFORMATION
  Report Type: Spontaneous
  Country: CN (occurrence: CN)
  Receive Date: 20211008
  Receipt Date: 20211008
  Transmission Date: 20220303
  Serious: Yes (Life-Threatening, Hospitalization)
  Sender: FDA-Public Use
  Company Number: CN-BAXTER-2021BAX031332

PATIENT
  Age: 38 Year
  Sex: Male
  Weight: 60 kg

DRUGS (7)
  1. CYCLOPHOSPHAMIDE [Suspect]
     Active Substance: CYCLOPHOSPHAMIDE
     Indication: Acute leukaemia
     Dosage: CYCLOPHOSPHAMIDE 1G + 0.9% SODIUM CHLORIDE 500ML
     Route: 041
     Dates: start: 20210918, end: 20210918
  2. SODIUM CHLORIDE [Suspect]
     Active Substance: SODIUM CHLORIDE
     Indication: Medication dilution
     Dosage: CYCLOPHOSPHAMIDE FOR INJECTION 1G + 0.9% SODIUM CHLORIDE INJECTION 500ML.
     Route: 041
     Dates: start: 20210918, end: 20210918
  3. SODIUM CHLORIDE [Suspect]
     Active Substance: SODIUM CHLORIDE
     Dosage: VINCRISTINE SULFATE 2MG + 0.9% SODIUM CHLORIDE INJECTION 100ML.
     Route: 041
     Dates: start: 20210918, end: 20210918
  4. SODIUM CHLORIDE [Suspect]
     Active Substance: SODIUM CHLORIDE
     Dosage: IDARUBICIN HYDROCHLORIDE FOR INJECTION 15MG + SODIUM CHLORIDE INJECTION 250ML.
     Route: 041
     Dates: start: 20210918, end: 20210920
  5. IDARUBICIN HYDROCHLORIDE [Suspect]
     Active Substance: IDARUBICIN HYDROCHLORIDE
     Indication: Acute leukaemia
     Dosage: IDARUBICIN HYDROCHLORIDE 15MG + SODIUM CHLORIDE 250ML.
     Route: 041
     Dates: start: 20210918, end: 20210920
  6. PEGASPARGASE [Suspect]
     Active Substance: PEGASPARGASE
     Indication: Acute leukaemia
     Route: 030
     Dates: start: 20210922, end: 20210922
  7. VINCRISTINE SULFATE [Suspect]
     Active Substance: VINCRISTINE SULFATE
     Indication: Acute leukaemia
     Dosage: VINCRISTINE SULFATE 2MG + 0.9% SODIUM CHLORIDE INJECTION 100ML.
     Route: 041
     Dates: start: 20210918, end: 20210918

REACTIONS (1)
  - Myelosuppression [Unknown]

NARRATIVE: CASE EVENT DATE: 20210921
